FAERS Safety Report 7070005-3 (Version None)
Quarter: 2010Q4

REPORT INFORMATION
  Report Type: 
  Country: None (occurrence: None)
  Receive Date: 20101028
  Receipt Date: 20100809
  Transmission Date: 20110411
  Serious: No
  Sender: FDA-Public Use
  Company Number: US-WYE-H16789410

PATIENT

DRUGS (7)
  1. PROTONIX [Suspect]
     Dosage: UNKNOWN
  2. LISINOPRIL [Suspect]
     Dosage: UNKNOWN
  3. CYMBALTA [Suspect]
     Dosage: UNKNOWN
  4. DETROL [Suspect]
     Dosage: UNKNOWN
  5. ADVAIR DISKUS 100/50 [Suspect]
     Dosage: UNKNOWN
  6. CELEBREX [Suspect]
     Dosage: UNKNOWN
  7. ZOCOR [Suspect]
     Dosage: UNKNOWN

REACTIONS (1)
  - CATARACT [None]
